FAERS Safety Report 8446233-9 (Version None)
Quarter: 2012Q2

REPORT INFORMATION
  Report Type: 
  Country: None (occurrence: None)
  Receive Date: 20120618
  Receipt Date: 20120608
  Transmission Date: 20120825
  Serious: No
  Sender: FDA-Public Use
  Company Number: US-ASTRAZENECA-2011SE13611

PATIENT
  Age: 77 Year
  Sex: Female
  Weight: 56.7 kg

DRUGS (7)
  1. NEXIUM [Suspect]
     Route: 048
  2. TOPROL-XL [Suspect]
     Route: 048
     Dates: start: 20050101
  3. ADVAIR DISKUS 100/50 [Concomitant]
     Indication: ASTHMA
     Route: 055
  4. CRESTOR [Suspect]
     Route: 048
  5. VALIUM [Concomitant]
  6. CRESTOR [Suspect]
     Route: 048
     Dates: start: 20120511
  7. TOPROL-XL [Suspect]
     Indication: HYPERTENSION
     Dosage: GENERIC
     Route: 048

REACTIONS (10)
  - FATIGUE [None]
  - HEADACHE [None]
  - DRUG HYPERSENSITIVITY [None]
  - BRONCHITIS [None]
  - INTERVERTEBRAL DISC PROTRUSION [None]
  - PRURITUS [None]
  - RASH PAPULAR [None]
  - DYSGEUSIA [None]
  - DECREASED APPETITE [None]
  - CANDIDIASIS [None]
